FAERS Safety Report 5956417-7 (Version None)
Quarter: 2008Q4

REPORT INFORMATION
  Report Type: 
  Country: None (occurrence: None)
  Receive Date: 20081114
  Receipt Date: 20081114
  Transmission Date: 20090506
  Serious: Yes (Hospitalization)
  Sender: FDA-Public Use
  Company Number: None

PATIENT
  Sex: Male
  Weight: 68 kg

DRUGS (3)
  1. FLUOROURACIL [Suspect]
     Indication: TONSIL CANCER
     Dosage: 600MG/M2 IV X5D
     Route: 042
     Dates: start: 20081102, end: 20081107
  2. HYDREA [Suspect]
     Indication: TONSIL CANCER
     Dosage: 500MG/M2 PO BID
     Route: 048
     Dates: start: 20081102, end: 20081107
  3. CETUXIMAB [Suspect]
     Dosage: 250MG/M2 IV QW
     Route: 042
     Dates: start: 20080722, end: 20081103

REACTIONS (6)
  - DEEP VEIN THROMBOSIS [None]
  - DERMATITIS [None]
  - DILATATION VENTRICULAR [None]
  - MUCOSAL INFLAMMATION [None]
  - OEDEMA [None]
  - PAIN [None]
